FAERS Safety Report 24419518 (Version 2)
Quarter: 2024Q4

REPORT INFORMATION
  Report Type: Spontaneous
  Country: US (occurrence: US)
  Receive Date: 20241010
  Receipt Date: 20241018
  Transmission Date: 20250114
  Serious: No
  Sender: ROCHE
  Company Number: US-ROCHE-3488569

PATIENT
  Sex: Male
  Weight: 94.5 kg

DRUGS (3)
  1. CATHFLO ACTIVASE [Suspect]
     Active Substance: ALTEPLASE
     Indication: Catheter directed thrombolysis
     Dosage: 1 VIAL IN EACH LIMB ;ONGOING: UNKNOWN
     Route: 065
     Dates: start: 20230413
  2. MIRCERA [Suspect]
     Active Substance: METHOXY POLYETHYLENE GLYCOL-EPOETIN BETA
     Indication: Therapy change
     Dosage: 400 MICROGRAM EVERY 3-4 WEEKS ;ONGOING: YES
     Route: 042
     Dates: start: 202312
  3. HEPARIN [Concomitant]
     Active Substance: HEPARIN SODIUM
     Indication: Catheter directed thrombolysis
     Route: 065

REACTIONS (4)
  - Off label use [Unknown]
  - Product complaint [Unknown]
  - No adverse event [Unknown]
  - Off label use [Unknown]

NARRATIVE: CASE EVENT DATE: 20231201
